FAERS Safety Report 5772639-2 (Version None)
Quarter: 2008Q2

REPORT INFORMATION
  Report Type: 
  Country: None (occurrence: None)
  Receive Date: 20080613
  Receipt Date: 20080609
  Transmission Date: 20081010
  Serious: Yes (Hospitalization, Other)
  Sender: FDA-Public Use
  Company Number: US-BOEHRINGER INGELHEIM GMBH, GERMANY-2008-BP-09208PF

PATIENT
  Sex: Female
  Weight: 74 kg

DRUGS (4)
  1. SPIRIVA [Suspect]
     Indication: CHRONIC OBSTRUCTIVE PULMONARY DISEASE
     Dates: start: 20060101, end: 20070101
  2. CHANTIX [Suspect]
     Indication: SMOKING CESSATION THERAPY
     Dates: start: 20061001
  3. CHANTIX [Suspect]
     Dates: start: 20061001
  4. STEROIDS [Concomitant]

REACTIONS (7)
  - ANXIETY [None]
  - BLINDNESS [None]
  - BRONCHOSPASM [None]
  - CHRONIC OBSTRUCTIVE PULMONARY DISEASE [None]
  - MALAISE [None]
  - SENSATION OF PRESSURE [None]
  - WEIGHT INCREASED [None]
